FAERS Safety Report 14029982 (Version 1)
Quarter: 2017Q4

REPORT INFORMATION
  Report Type: Spontaneous
  Country: US (occurrence: US)
  Receive Date: 20171002
  Receipt Date: 20171002
  Transmission Date: 20180321
  Serious: No
  Sender: FDA-Public Use
  Company Number: US-GALDERMA-US17003143

PATIENT
  Age: 19 Year
  Sex: Female
  Weight: 47.63 kg

DRUGS (5)
  1. DOXYCYCLINE. [Suspect]
     Active Substance: DOXYCYCLINE
     Indication: SKIN REACTION
  2. CETAPHIL [Suspect]
     Active Substance: AVOBENZONE\OCTOCRYLENE\TRICLOSAN
     Indication: DRY SKIN
     Route: 061
     Dates: start: 201606, end: 201703
  3. CETAPHIL MOISTURIZING CREAM [Suspect]
     Active Substance: COSMETICS
     Indication: DRY SKIN
     Route: 061
     Dates: start: 201606, end: 201703
  4. CETAPHIL GENTLE SKIN CLEANSER [Suspect]
     Active Substance: COSMETICS
     Indication: DRY SKIN
     Route: 061
     Dates: start: 201606, end: 201703
  5. ZYRTEC [Suspect]
     Active Substance: CETIRIZINE HYDROCHLORIDE
     Indication: SKIN REACTION

REACTIONS (7)
  - Intentional product use issue [Recovered/Resolved]
  - Rash papular [Recovering/Resolving]
  - Acne [Recovering/Resolving]
  - Skin haemorrhage [Recovering/Resolving]
  - Hepatic enzyme increased [Unknown]
  - Erythema [Recovering/Resolving]
  - Pruritus [Recovering/Resolving]

NARRATIVE: CASE EVENT DATE: 20160606
